FAERS Safety Report 7968682-5 (Version None)
Quarter: 2011Q4

REPORT INFORMATION
  Report Type: 
  Country: None (occurrence: None)
  Receive Date: 20111207
  Receipt Date: 20111129
  Transmission Date: 20120403
  Serious: Yes (Other)
  Sender: FDA-Public Use
  Company Number: DKLU1075147

PATIENT
  Age: 6 Year
  Sex: Female

DRUGS (2)
  1. ELSPAR [Suspect]
     Indication: ACUTE LYMPHOCYTIC LEUKAEMIA
  2. OCTREOTIDE ACETATE [Suspect]
     Indication: PANCREATITIS ACUTE

REACTIONS (3)
  - PANCREATITIS [None]
  - EPILEPSY [None]
  - DRUG INTERACTION [None]
